FAERS Safety Report 19937478 (Version 2)
Quarter: 2021Q4

REPORT INFORMATION
  Report Type: Spontaneous
  Country: None (occurrence: GB)
  Receive Date: 20211011
  Receipt Date: 20211125
  Transmission Date: 20220303
  Serious: Yes (Other)
  Sender: FDA-Public Use
  Company Number: GB-ASCEND THERAPEUTICS US, LLC-2120380

PATIENT
  Age: 42 Year
  Sex: Female
  Weight: 81 kg

DRUGS (3)
  1. ESTROGEL [Suspect]
     Active Substance: ESTRADIOL
     Indication: Menopausal symptoms
     Route: 061
     Dates: start: 20200930
  2. ESTROGEL [Suspect]
     Active Substance: ESTRADIOL
  3. ESTRADIOL [Suspect]
     Active Substance: ESTRADIOL
     Route: 061
     Dates: start: 20200930

REACTIONS (6)
  - Intermenstrual bleeding [Recovering/Resolving]
  - Hot flush [Recovering/Resolving]
  - Sleep disorder [Recovering/Resolving]
  - Therapeutic product effect decreased [Unknown]
  - Medication error [Unknown]
  - Menopausal symptoms [Recovering/Resolving]

NARRATIVE: CASE EVENT DATE: 20210913
